FAERS Safety Report 9438149 (Version 1)
Quarter: 2013Q3

REPORT INFORMATION
  Report Type: Spontaneous
  Country: US (occurrence: US)
  Receive Date: 20130802
  Receipt Date: 20130802
  Transmission Date: 20140515
  Serious: No
  Sender: FDA-Public Use
  Company Number: US-BRISTOL-MYERS SQUIBB COMPANY-16932311

PATIENT
  Age: 69 Year
  Sex: Female

DRUGS (3)
  1. COUMADIN [Suspect]
     Indication: JUGULAR VEIN THROMBOSIS
     Dosage: 10MG TWO DAYS A WEEK AND 7.5MG ALL OTHER DAYS FOR 2 1/2 MONTHS ?5MG
     Route: 048
     Dates: start: 20120612
  2. HUMULIN [Concomitant]
     Indication: DIABETES MELLITUS
  3. LISINOPRIL [Concomitant]
     Indication: HYPERTENSION

REACTIONS (1)
  - Vaginal haemorrhage [Unknown]
